FAERS Safety Report 18616910 (Version 2)
Quarter: 2021Q1

REPORT INFORMATION
  Report Type: Report from Study
  Country: None (occurrence: US)
  Receive Date: 20201215
  Receipt Date: 20210211
  Transmission Date: 20210419
  Serious: Yes (Other)
  Sender: FDA-Public Use
  Company Number: US-ABBVIE-20K-163-3688439-00

PATIENT
  Age: 53 Year
  Sex: Female
  Weight: 119.4 kg

DRUGS (2)
  1. HUMIRA [Suspect]
     Active Substance: ADALIMUMAB
     Route: 058
  2. HUMIRA [Suspect]
     Active Substance: ADALIMUMAB
     Indication: RHEUMATOID ARTHRITIS
     Route: 058
     Dates: end: 2020

REACTIONS (7)
  - Mass [Recovering/Resolving]
  - Rheumatoid arthritis [Recovering/Resolving]
  - Colpocele [Recovering/Resolving]
  - Cystitis [Recovering/Resolving]
  - Malaise [Recovering/Resolving]
  - Pain [Unknown]
  - Headache [Recovering/Resolving]

NARRATIVE: CASE EVENT DATE: 2020
